FAERS Safety Report 5479469-X (Version None)
Quarter: 2007Q4

REPORT INFORMATION
  Report Type: 
  Country: None (occurrence: None)
  Receive Date: 20071008
  Receipt Date: 20071002
  Transmission Date: 20080405
  Serious: Yes (Life-Threatening)
  Sender: FDA-Public Use
  Company Number: JP-ASTRAZENECA-2007SE05201

PATIENT
  Age: 29914 Day
  Sex: Male

DRUGS (7)
  1. BLOPRESS TABLETS 4 [Suspect]
     Indication: HYPERTENSION
     Route: 048
     Dates: start: 20060614
  2. VFEND [Suspect]
     Indication: ASPERGILLOMA
     Route: 048
     Dates: start: 20070912
  3. NORVASC [Concomitant]
     Indication: HYPERTENSION
     Route: 048
     Dates: start: 20060524
  4. CLARITHROMYCIN [Concomitant]
     Indication: BRONCHITIS
     Route: 048
     Dates: start: 20070523, end: 20070722
  5. LEVOFLOXACIN [Concomitant]
     Indication: BRONCHITIS
     Route: 048
     Dates: start: 20070723, end: 20070731
  6. ITRIZOLE [Concomitant]
     Indication: ASPERGILLOMA
     Route: 048
     Dates: start: 20070801, end: 20070911
  7. ALDACTONE [Concomitant]
     Indication: CARDIAC FAILURE
     Route: 048
     Dates: start: 20070912

REACTIONS (1)
  - INTESTINAL ISCHAEMIA [None]
